FAERS Safety Report 5334951-0 (Version None)
Quarter: 2007Q1

REPORT INFORMATION
  Report Type: 
  Country: None (occurrence: None)
  Receive Date: 20070308
  Receipt Date: 20070110
  Transmission Date: 20070707
  Serious: No
  Sender: FDA-Public Use
  Company Number: 2007-BP-00426BP

PATIENT
  Age: 80 Year
  Sex: Male

DRUGS (3)
  1. SPIRIVA [Suspect]
     Indication: CHRONIC OBSTRUCTIVE PULMONARY DISEASE
     Dosage: 18 MCG (18 MCG, 1 PUFF QD) IH
     Route: 055
     Dates: start: 20050101
  2. SYNTHROID [Concomitant]
  3. TEMAZEPAM [Concomitant]

REACTIONS (1)
  - BLOOD PRESSURE INCREASED [None]
